FAERS Safety Report 7747151-1 (Version None)
Quarter: 2011Q3

REPORT INFORMATION
  Report Type: 
  Country: None (occurrence: None)
  Receive Date: 20110907
  Receipt Date: 20110829
  Transmission Date: 20111222
  Serious: Yes (Other)
  Sender: FDA-Public Use
  Company Number: 2011002218

PATIENT
  Age: 68 Year
  Sex: Male

DRUGS (1)
  1. TARCEVA [Suspect]
     Indication: LUNG CARCINOMA CELL TYPE UNSPECIFIED STAGE 0
     Dosage: 150 MG, UID/QID, ORAL; ORAL
     Route: 048
     Dates: start: 20110429

REACTIONS (7)
  - WEIGHT DECREASED [None]
  - DEAFNESS [None]
  - PNEUMONIA [None]
  - DEHYDRATION [None]
  - NAUSEA [None]
  - RASH [None]
  - DIARRHOEA [None]
